FAERS Safety Report 8125233-2 (Version None)
Quarter: 2012Q1

REPORT INFORMATION
  Report Type: 
  Country: None (occurrence: None)
  Receive Date: 20120209
  Receipt Date: 20120207
  Transmission Date: 20120608
  Serious: Yes (Life-Threatening)
  Sender: FDA-Public Use
  Company Number: DE-B.I. PHARMACEUTICALS,INC./RIDGEFIELD-2012-DE-00397DE

PATIENT
  Sex: Female
  Weight: 50 kg

DRUGS (4)
  1. PRADAXA [Suspect]
     Indication: ATRIAL FIBRILLATION
     Dosage: 220 MG
     Route: 048
     Dates: start: 20111026, end: 20120120
  2. SETRALIN [Concomitant]
     Indication: DEPRESSION
     Dosage: 50 MG
     Route: 048
     Dates: start: 20110804
  3. METOPROLOL TARTRATE [Concomitant]
     Indication: CARDIAC FAILURE
     Dosage: 95 MG
     Route: 048
     Dates: start: 20101202
  4. SIMVASTATIN [Concomitant]
     Indication: HYPERCHOLESTEROLAEMIA
     Dosage: 20 MG
     Route: 048
     Dates: start: 20110505

REACTIONS (4)
  - ANAEMIA [None]
  - GASTRIC ULCER [None]
  - HAEMORRHAGE [None]
  - CARDIAC FAILURE [None]
